FAERS Safety Report 9822697 (Version 1)
Quarter: 2014Q1

REPORT INFORMATION
  Report Type: Spontaneous
  Country: US (occurrence: US)
  Receive Date: 20140116
  Receipt Date: 20140116
  Transmission Date: 20141002
  Serious: Yes (Other)
  Sender: FDA-Public Use
  Company Number: PHHY2014US002377

PATIENT
  Age: 47 Year
  Sex: Male

DRUGS (14)
  1. FENTANYL [Suspect]
     Indication: GENERAL ANAESTHESIA
     Dosage: 50 UG, (2 DOSES)
     Route: 042
  2. FENTANYL [Suspect]
     Indication: PAIN
  3. DULOXETINE [Suspect]
     Indication: DEPRESSION
     Dosage: 120 MG, DAILY
  4. TRAZODONE [Suspect]
     Dosage: 100 MG EVERY EVENING
  5. ONDANSETRON [Suspect]
     Dosage: 4 MG, UNK
  6. GABAPENTIN [Concomitant]
     Indication: PAIN
     Dosage: 2700 MG, UNK
  7. MIDAZOLAM [Concomitant]
     Indication: GENERAL ANAESTHESIA
     Dosage: 2 MG, UNK
  8. MIDAZOLAM [Concomitant]
     Indication: AGITATION
  9. PROPOFOL [Concomitant]
  10. DESFLURANE [Concomitant]
  11. VECURONIUM [Concomitant]
     Dosage: 15 MG, IN DIVIDED DOSES
  12. KETAMINE [Concomitant]
     Dosage: 20 MG, UNK
  13. GLYCOPYRROLATE [Concomitant]
     Dosage: 0.4 MG, UNK
  14. NEOSTIGMINE [Concomitant]
     Dosage: 2.5 MG, UNK

REACTIONS (12)
  - Serotonin syndrome [Recovering/Resolving]
  - Psychomotor hyperactivity [Recovering/Resolving]
  - Muscle rigidity [Recovering/Resolving]
  - Trismus [Recovering/Resolving]
  - Tremor [Recovering/Resolving]
  - Confusional state [Recovering/Resolving]
  - Clonus [Recovering/Resolving]
  - Blood pressure increased [Recovering/Resolving]
  - Tachycardia [Recovered/Resolved]
  - Agitation [Unknown]
  - Pain [Unknown]
  - Acidosis [Unknown]
